FAERS Safety Report 13844369 (Version 1)
Quarter: 2017Q3

REPORT INFORMATION
  Report Type: Spontaneous
  Country: US (occurrence: US)
  Receive Date: 20170808
  Receipt Date: 20170808
  Transmission Date: 20171127
  Serious: Yes (Hospitalization, Other)
  Sender: FDA-Public Use
  Company Number: US-ZYDUS-016001

PATIENT
  Age: 26 Year
  Sex: Female

DRUGS (6)
  1. HYDROXYCHLOROQUINE [Suspect]
     Active Substance: HYDROXYCHLOROQUINE
     Indication: SYSTEMIC LUPUS ERYTHEMATOSUS
     Route: 065
  2. PREDNISONE. [Concomitant]
     Active Substance: PREDNISONE
     Indication: SYSTEMIC LUPUS ERYTHEMATOSUS
     Route: 065
  3. PREDNISONE. [Concomitant]
     Active Substance: PREDNISONE
     Indication: SYSTEMIC LUPUS ERYTHEMATOSUS
     Route: 065
  4. MYCOPHENOLIC ACID. [Concomitant]
     Active Substance: MYCOPHENOLIC ACID
     Indication: SYSTEMIC LUPUS ERYTHEMATOSUS
     Route: 065
  5. PREDNISONE. [Concomitant]
     Active Substance: PREDNISONE
     Indication: SYSTEMIC LUPUS ERYTHEMATOSUS
     Route: 065
  6. PREDNISONE. [Concomitant]
     Active Substance: PREDNISONE
     Indication: SYSTEMIC LUPUS ERYTHEMATOSUS
     Route: 065

REACTIONS (39)
  - Systemic lupus erythematosus [Recovered/Resolved]
  - Pyrexia [Recovered/Resolved]
  - Myopathy [Recovered/Resolved]
  - Epstein-Barr virus infection [Recovered/Resolved]
  - Fatigue [Recovered/Resolved]
  - Malaise [Recovered/Resolved]
  - Pupils unequal [Recovered/Resolved]
  - Encephalopathy [Recovered/Resolved]
  - Tachycardia [Recovered/Resolved]
  - Transaminases increased [Recovered/Resolved]
  - Myalgia [Recovered/Resolved]
  - Abdominal lymphadenopathy [Recovered/Resolved]
  - Pancytopenia [Recovered/Resolved]
  - Mental status changes [Recovered/Resolved]
  - Respiratory failure [Recovered/Resolved]
  - Hypotonia [Recovered/Resolved]
  - Blood creatine phosphokinase increased [Recovered/Resolved]
  - Staphylococcal infection [Recovered/Resolved]
  - Neuropsychiatric lupus [Recovered/Resolved]
  - Leukocytosis [Recovered/Resolved]
  - Unresponsive to stimuli [Recovered/Resolved]
  - Eye movement disorder [Recovered/Resolved]
  - Muscular weakness [Recovered/Resolved]
  - Neurological decompensation [Recovered/Resolved]
  - Quadriparesis [Recovered/Resolved]
  - Abdominal pain [Recovered/Resolved]
  - Blood immunoglobulin G increased [Recovered/Resolved]
  - Thrombosis [Recovered/Resolved]
  - Inflammatory marker increased [Recovered/Resolved]
  - Herpes simplex encephalitis [Recovered/Resolved]
  - Histiocytosis haematophagic [Recovered/Resolved]
  - Generalised tonic-clonic seizure [Recovered/Resolved]
  - Dyspnoea [Recovered/Resolved]
  - Retroperitoneal lymphadenopathy [Recovered/Resolved]
  - Blood immunoglobulin M increased [Recovered/Resolved]
  - Oedema peripheral [Recovered/Resolved]
  - Nodular rash [Recovered/Resolved]
  - Red blood cell sedimentation rate increased [Recovered/Resolved]
  - C-reactive protein increased [Recovered/Resolved]
